FAERS Safety Report 7460966-2 (Version None)
Quarter: 2011Q2

REPORT INFORMATION
  Report Type: 
  Country: None (occurrence: None)
  Receive Date: 20110505
  Receipt Date: 20110421
  Transmission Date: 20111010
  Serious: Yes (Other)
  Sender: FDA-Public Use
  Company Number: US-ELI_LILLY_AND_COMPANY-US201103002103

PATIENT
  Sex: Female

DRUGS (1)
  1. ZYPREXA [Suspect]
     Indication: SCHIZOPHRENIA
     Dosage: 20 MG, DAILY (1/D)
     Dates: start: 20101001, end: 20110201

REACTIONS (5)
  - AGRANULOCYTOSIS [None]
  - PLATELET COUNT DECREASED [None]
  - ANAEMIA [None]
  - PSYCHOTIC DISORDER [None]
  - BONE MARROW FAILURE [None]
